FAERS Safety Report 14271315 (Version 2)
Quarter: 2018Q1

REPORT INFORMATION
  Report Type: Spontaneous
  Country: US (occurrence: US)
  Receive Date: 20171211
  Receipt Date: 20180313
  Transmission Date: 20180508
  Serious: Yes (Hospitalization, Other)
  Sender: FDA-Public Use
  Company Number: US-PFIZER INC-2017528211

PATIENT
  Sex: Male

DRUGS (3)
  1. HEROIN [Suspect]
     Active Substance: DIAMORPHINE
     Dosage: 2 ^BUNDLES^ DAILY
     Route: 055
  2. ALCOHOL. [Suspect]
     Active Substance: ALCOHOL
     Dosage: APPROXIMATELY 12 BEERS AND 1 PINT OF VODKA DAILY
     Route: 048
  3. ALPRAZOLAM. [Suspect]
     Active Substance: ALPRAZOLAM
     Dosage: 2-4 MG DAILY
     Route: 048

REACTIONS (4)
  - Drug dependence [Unknown]
  - Withdrawal syndrome [Unknown]
  - Substance abuse [Unknown]
  - Loss of consciousness [Unknown]
